FAERS Safety Report 4967617-7 (Version None)
Quarter: 2006Q2

REPORT INFORMATION
  Report Type: 
  Country: None (occurrence: None)
  Receive Date: 20060410
  Receipt Date: 20060404
  Transmission Date: 20061013
  Serious: Yes (Other)
  Sender: FDA-Public Use
  Company Number: 2006UW05955

PATIENT
  Age: 63 Year
  Sex: Female
  Weight: 45.4 kg

DRUGS (7)
  1. SEROQUEL [Suspect]
     Indication: NERVOUSNESS
     Route: 048
  2. SEROQUEL [Suspect]
     Indication: BIPOLAR DISORDER
     Route: 048
  3. SEROQUEL [Suspect]
     Indication: SCHIZOPHRENIA
     Route: 048
  4. SYNTHROID [Concomitant]
  5. LEXAPRO [Concomitant]
  6. ASPIRIN [Concomitant]
  7. PEPCID [Concomitant]

REACTIONS (3)
  - COLOSTOMY [None]
  - MENTAL DISORDER [None]
  - RECTAL PROLAPSE REPAIR [None]
